FAERS Safety Report 20417243 (Version 1)
Quarter: 2022Q1

REPORT INFORMATION
  Report Type: Report from Study
  Country: US (occurrence: US)
  Receive Date: 20220202
  Receipt Date: 20220202
  Transmission Date: 20220423
  Serious: Yes (Other)
  Sender: FDA-Public Use
  Company Number: US-GLAXOSMITHKLINE-US2022AMR015837

PATIENT
  Age: 82 Year
  Sex: Female

DRUGS (1)
  1. BELANTAMAB MAFODOTIN [Suspect]
     Active Substance: BELANTAMAB MAFODOTIN
     Indication: Plasma cell myeloma
     Dosage: 1.9 MG, Z, EVERY 8-10 WEEKS
     Dates: start: 20200511

REACTIONS (4)
  - Corneal cyst [Unknown]
  - Visual impairment [Not Recovered/Not Resolved]
  - Light chain analysis increased [Unknown]
  - Dry eye [Unknown]
